FAERS Safety Report 12524706 (Version 2)
Quarter: 2016Q3

REPORT INFORMATION
  Report Type: Other
  Country: US (occurrence: US)
  Receive Date: 20160704
  Receipt Date: 20160705
  Transmission Date: 20161109
  Serious: Yes (Hospitalization)
  Sender: FDA-Public Use
  Company Number: US-SHIRE-US201607722

PATIENT
  Age: 57 Year
  Sex: Male
  Weight: 88.44 kg

DRUGS (1)
  1. GATTEX [Suspect]
     Active Substance: TEDUGLUTIDE\WATER
     Indication: PRODUCT USED FOR UNKNOWN INDICATION
     Dosage: 0.34 ML, 1X/DAY:QD
     Route: 058

REACTIONS (1)
  - Pain [Unknown]

NARRATIVE: CASE EVENT DATE: 20160620
